FAERS Safety Report 10050165 (Version 2)
Quarter: 2014Q2

REPORT INFORMATION
  Report Type: Spontaneous
  Country: US (occurrence: US)
  Receive Date: 20140401
  Receipt Date: 20140424
  Transmission Date: 20141212
  Serious: Yes (Other)
  Sender: FDA-Public Use
  Company Number: US-MALLINCKRODT-T201401676

PATIENT
  Age: 25 Year
  Sex: Male

DRUGS (2)
  1. GABLOFEN [Suspect]
     Indication: MUSCLE SPASTICITY
     Dosage: 186.57 MCG/DAY
     Route: 037
     Dates: start: 20130917, end: 20130917
  2. GABLOFEN [Concomitant]
     Indication: MUSCLE SPASTICITY
     Dosage: 186.57 MCG/DAY
     Route: 037
     Dates: end: 20130917

REACTIONS (2)
  - Incorrect dose administered [Recovered/Resolved]
  - Overdose [Recovered/Resolved]
